FAERS Safety Report 20586973 (Version 1)
Quarter: 2022Q1

REPORT INFORMATION
  Report Type: Spontaneous
  Country: IN (occurrence: IN)
  Receive Date: 20220314
  Receipt Date: 20220314
  Transmission Date: 20220424
  Serious: Yes (Hospitalization, Other)
  Sender: FDA-Public Use
  Company Number: IN-ALEMBIC PHARMACUETICALS LIMITED-2022SCAL000075

PATIENT

DRUGS (3)
  1. AZITHROMYCIN [Suspect]
     Active Substance: AZITHROMYCIN
     Indication: COVID-19
     Dosage: UNK
     Route: 065
  2. IVERMECTIN [Suspect]
     Active Substance: IVERMECTIN
     Indication: COVID-19
     Dosage: UNK
     Route: 065
  3. ZINC [Suspect]
     Active Substance: ZINC
     Indication: COVID-19
     Dosage: UNK
     Route: 065

REACTIONS (7)
  - Rhinocerebral mucormycosis [Unknown]
  - Intracranial infection [Unknown]
  - Eye pain [Unknown]
  - Eye swelling [Unknown]
  - Sinusitis fungal [Unknown]
  - Optic neuritis [Unknown]
  - Blindness [Unknown]
